FAERS Safety Report 18514140 (Version 1)
Quarter: 2020Q4

REPORT INFORMATION
  Report Type: Spontaneous
  Country: US (occurrence: US)
  Receive Date: 20201118
  Receipt Date: 20201118
  Transmission Date: 20210114
  Serious: No
  Sender: FDA-Public Use
  Company Number: US-ALLERGAN-2023391US

PATIENT
  Sex: Female

DRUGS (2)
  1. ALPHAGAN P [Suspect]
     Active Substance: BRIMONIDINE TARTRATE
     Indication: GLAUCOMA
  2. ALPHAGAN P [Suspect]
     Active Substance: BRIMONIDINE TARTRATE
     Indication: INTRAOCULAR PRESSURE INCREASED
     Dosage: 1 GTT, BID, AT NIGHT
     Route: 047

REACTIONS (6)
  - Eye irritation [Unknown]
  - Insomnia [Unknown]
  - Intentional product misuse [Unknown]
  - Lacrimation increased [Unknown]
  - Off label use [Unknown]
  - Hypersensitivity [Unknown]
